FAERS Safety Report 9216160 (Version 3)
Quarter: 2013Q2

REPORT INFORMATION
  Report Type: Spontaneous
  Country: US (occurrence: US)
  Receive Date: 20130408
  Receipt Date: 20130425
  Transmission Date: 20140414
  Serious: Yes (Life-Threatening, Hospitalization, Disabling, Other)
  Sender: FDA-Public Use
  Company Number: US-009507513-1304USA002898

PATIENT
  Age: 60 Year
  Sex: Male

DRUGS (1)
  1. INTEGRILIN [Suspect]
     Indication: ACUTE MYOCARDIAL INFARCTION
     Dosage: UNK
     Dates: start: 201301

REACTIONS (2)
  - Cardiogenic shock [Unknown]
  - Pulmonary alveolar haemorrhage [Unknown]
